FAERS Safety Report 5830176-0 (Version None)
Quarter: 2008Q3

REPORT INFORMATION
  Report Type: 
  Country: None (occurrence: None)
  Receive Date: 20080801
  Receipt Date: 20080512
  Transmission Date: 20090109
  Serious: No
  Sender: FDA-Public Use
  Company Number: US-BAYER-200823061NA

PATIENT
  Age: 25 Year
  Sex: Female
  Weight: 77 kg

DRUGS (3)
  1. MIRENA [Suspect]
     Indication: HAEMORRHAGE
     Route: 015
     Dates: start: 20080509, end: 20080512
  2. HYDROCHLOROTHIAZIDE [Concomitant]
     Indication: HYPERTENSION
     Route: 048
  3. PNV (NEVO) [Concomitant]
     Indication: ANAEMIA PROPHYLAXIS
     Route: 065

REACTIONS (4)
  - ABDOMINAL PAIN [None]
  - INTRA-UTERINE CONTRACEPTIVE DEVICE EXPELLED [None]
  - PROCEDURAL PAIN [None]
  - VAGINAL DISCHARGE [None]
